FAERS Safety Report 9129136 (Version 1)
Quarter: 2013Q1

REPORT INFORMATION
  Report Type: Spontaneous
  Country: NL (occurrence: NL)
  Receive Date: 20130228
  Receipt Date: 20130228
  Transmission Date: 20140127
  Serious: Yes (Hospitalization, Other)
  Sender: FDA-Public Use
  Company Number: PHHY2012NL104104

PATIENT
  Sex: Male

DRUGS (7)
  1. RITALIN [Suspect]
     Dosage: 10 MG, BID
     Route: 048
     Dates: start: 201212
  2. RITALIN [Suspect]
     Dosage: 15 MG, BID
     Route: 048
  3. RITALIN [Suspect]
     Dosage: 15 MG, TID
  4. RITALIN [Suspect]
     Dosage: 20 MG, QID
  5. RITALIN [Suspect]
     Dosage: 5 MG, QD
  6. SUPRADYN [Concomitant]
  7. LEXAPRO [Concomitant]

REACTIONS (7)
  - Mania [Recovering/Resolving]
  - Cardiac disorder [Recovering/Resolving]
  - Chest pain [Recovering/Resolving]
  - Circulatory collapse [Recovering/Resolving]
  - Drug ineffective [Unknown]
  - Palpitations [Recovering/Resolving]
  - Headache [Recovering/Resolving]
